FAERS Safety Report 11702795 (Version 1)
Quarter: 2015Q4

REPORT INFORMATION
  Report Type: Spontaneous
  Country: US (occurrence: US)
  Receive Date: 20151105
  Receipt Date: 20151105
  Transmission Date: 20160304
  Serious: No
  Sender: FDA-Public Use
  Company Number: US-009507513-1510USA010853

PATIENT
  Age: 39 Year
  Weight: 135 kg

DRUGS (1)
  1. NUVARING [Suspect]
     Active Substance: ETHINYL ESTRADIOL\ETONOGESTREL
     Indication: CONTRACEPTION
     Dosage: 1 RING THREE WEEK USE
     Route: 067

REACTIONS (2)
  - Metrorrhagia [Unknown]
  - Incorrect product storage [Unknown]
